FAERS Safety Report 7916596 (Version 10)
Quarter: 2013Q1

REPORT INFORMATION
  Report Type: Spontaneous
  Country: US (occurrence: US)
  Receive Date: 20110427
  Receipt Date: 20130321
  Transmission Date: 20140127
  Serious: Yes (Hospitalization, Other)
  Sender: FDA-Public Use
  Company Number: US-ASTRAZENECA-2011SE22029

PATIENT
  Age: 55 Year
  Sex: Female
  Weight: 69.4 kg

DRUGS (150)
  1. SEROQUEL [Suspect]
     Indication: BIPOLAR DISORDER
     Route: 048
     Dates: start: 1993
  2. SEROQUEL [Suspect]
     Indication: SLEEP DISORDER
     Route: 048
     Dates: start: 1993
  3. SEROQUEL [Suspect]
     Indication: DEPRESSION
     Route: 048
     Dates: start: 1993
  4. SEROQUEL [Suspect]
     Indication: ANXIETY
     Route: 048
     Dates: start: 1993
  5. SEROQUEL [Suspect]
     Indication: AFFECTIVE DISORDER
     Route: 048
     Dates: start: 1993
  6. SEROQUEL [Suspect]
     Indication: SCHIZOPHRENIA
     Route: 048
     Dates: start: 1993
  7. SEROQUEL [Suspect]
     Indication: PERSONALITY DISORDER
     Route: 048
     Dates: start: 1993
  8. SEROQUEL [Suspect]
     Indication: DEPRESSION
     Route: 048
     Dates: start: 1993
  9. SEROQUEL [Suspect]
     Indication: POST-TRAUMATIC STRESS DISORDER
     Route: 048
     Dates: start: 1993
  10. SEROQUEL [Suspect]
     Indication: BIPOLAR DISORDER
     Route: 048
     Dates: start: 1994
  11. SEROQUEL [Suspect]
     Indication: SLEEP DISORDER
     Route: 048
     Dates: start: 1994
  12. SEROQUEL [Suspect]
     Indication: DEPRESSION
     Route: 048
     Dates: start: 1994
  13. SEROQUEL [Suspect]
     Indication: ANXIETY
     Route: 048
     Dates: start: 1994
  14. SEROQUEL [Suspect]
     Indication: AFFECTIVE DISORDER
     Route: 048
     Dates: start: 1994
  15. SEROQUEL [Suspect]
     Indication: SCHIZOPHRENIA
     Route: 048
     Dates: start: 1994
  16. SEROQUEL [Suspect]
     Indication: PERSONALITY DISORDER
     Route: 048
     Dates: start: 1994
  17. SEROQUEL [Suspect]
     Indication: DEPRESSION
     Route: 048
     Dates: start: 1994
  18. SEROQUEL [Suspect]
     Indication: POST-TRAUMATIC STRESS DISORDER
     Route: 048
     Dates: start: 1994
  19. SEROQUEL [Suspect]
     Indication: BIPOLAR DISORDER
     Route: 048
  20. SEROQUEL [Suspect]
     Indication: SLEEP DISORDER
     Route: 048
  21. SEROQUEL [Suspect]
     Indication: DEPRESSION
     Route: 048
  22. SEROQUEL [Suspect]
     Indication: ANXIETY
     Route: 048
  23. SEROQUEL [Suspect]
     Indication: AFFECTIVE DISORDER
     Route: 048
  24. SEROQUEL [Suspect]
     Indication: SCHIZOPHRENIA
     Route: 048
  25. SEROQUEL [Suspect]
     Indication: PERSONALITY DISORDER
     Route: 048
  26. SEROQUEL [Suspect]
     Indication: DEPRESSION
     Route: 048
  27. SEROQUEL [Suspect]
     Indication: POST-TRAUMATIC STRESS DISORDER
     Route: 048
  28. SEROQUEL [Suspect]
     Indication: BIPOLAR DISORDER
     Route: 048
     Dates: start: 2002
  29. SEROQUEL [Suspect]
     Indication: SLEEP DISORDER
     Route: 048
     Dates: start: 2002
  30. SEROQUEL [Suspect]
     Indication: DEPRESSION
     Route: 048
     Dates: start: 2002
  31. SEROQUEL [Suspect]
     Indication: ANXIETY
     Route: 048
     Dates: start: 2002
  32. SEROQUEL [Suspect]
     Indication: AFFECTIVE DISORDER
     Route: 048
     Dates: start: 2002
  33. SEROQUEL [Suspect]
     Indication: SCHIZOPHRENIA
     Route: 048
     Dates: start: 2002
  34. SEROQUEL [Suspect]
     Indication: PERSONALITY DISORDER
     Route: 048
     Dates: start: 2002
  35. SEROQUEL [Suspect]
     Indication: DEPRESSION
     Route: 048
     Dates: start: 2002
  36. SEROQUEL [Suspect]
     Indication: POST-TRAUMATIC STRESS DISORDER
     Route: 048
     Dates: start: 2002
  37. SEROQUEL [Suspect]
     Indication: BIPOLAR DISORDER
     Route: 048
  38. SEROQUEL [Suspect]
     Indication: SLEEP DISORDER
     Route: 048
  39. SEROQUEL [Suspect]
     Indication: DEPRESSION
     Route: 048
  40. SEROQUEL [Suspect]
     Indication: ANXIETY
     Route: 048
  41. SEROQUEL [Suspect]
     Indication: AFFECTIVE DISORDER
     Route: 048
  42. SEROQUEL [Suspect]
     Indication: SCHIZOPHRENIA
     Route: 048
  43. SEROQUEL [Suspect]
     Indication: PERSONALITY DISORDER
     Route: 048
  44. SEROQUEL [Suspect]
     Indication: DEPRESSION
     Route: 048
  45. SEROQUEL [Suspect]
     Indication: POST-TRAUMATIC STRESS DISORDER
     Route: 048
  46. SEROQUEL [Suspect]
     Indication: BIPOLAR DISORDER
     Route: 048
  47. SEROQUEL [Suspect]
     Indication: SLEEP DISORDER
     Route: 048
  48. SEROQUEL [Suspect]
     Indication: DEPRESSION
     Route: 048
  49. SEROQUEL [Suspect]
     Indication: ANXIETY
     Route: 048
  50. SEROQUEL [Suspect]
     Indication: AFFECTIVE DISORDER
     Route: 048
  51. SEROQUEL [Suspect]
     Indication: SCHIZOPHRENIA
     Route: 048
  52. SEROQUEL [Suspect]
     Indication: PERSONALITY DISORDER
     Route: 048
  53. SEROQUEL [Suspect]
     Indication: DEPRESSION
     Route: 048
  54. SEROQUEL [Suspect]
     Indication: POST-TRAUMATIC STRESS DISORDER
     Route: 048
  55. SEROQUEL [Suspect]
     Indication: BIPOLAR DISORDER
     Route: 048
  56. SEROQUEL [Suspect]
     Indication: SLEEP DISORDER
     Route: 048
  57. SEROQUEL [Suspect]
     Indication: DEPRESSION
     Route: 048
  58. SEROQUEL [Suspect]
     Indication: ANXIETY
     Route: 048
  59. SEROQUEL [Suspect]
     Indication: AFFECTIVE DISORDER
     Route: 048
  60. SEROQUEL [Suspect]
     Indication: SCHIZOPHRENIA
     Route: 048
  61. SEROQUEL [Suspect]
     Indication: PERSONALITY DISORDER
     Route: 048
  62. SEROQUEL [Suspect]
     Indication: DEPRESSION
     Route: 048
  63. SEROQUEL [Suspect]
     Indication: POST-TRAUMATIC STRESS DISORDER
     Route: 048
  64. SEROQUEL [Suspect]
     Indication: BIPOLAR DISORDER
     Route: 048
     Dates: start: 201202
  65. SEROQUEL [Suspect]
     Indication: SLEEP DISORDER
     Route: 048
     Dates: start: 201202
  66. SEROQUEL [Suspect]
     Indication: DEPRESSION
     Route: 048
     Dates: start: 201202
  67. SEROQUEL [Suspect]
     Indication: ANXIETY
     Route: 048
     Dates: start: 201202
  68. SEROQUEL [Suspect]
     Indication: AFFECTIVE DISORDER
     Route: 048
     Dates: start: 201202
  69. SEROQUEL [Suspect]
     Indication: SCHIZOPHRENIA
     Route: 048
     Dates: start: 201202
  70. SEROQUEL [Suspect]
     Indication: PERSONALITY DISORDER
     Route: 048
     Dates: start: 201202
  71. SEROQUEL [Suspect]
     Indication: DEPRESSION
     Route: 048
     Dates: start: 201202
  72. SEROQUEL [Suspect]
     Indication: POST-TRAUMATIC STRESS DISORDER
     Route: 048
     Dates: start: 201202
  73. SEROQUEL [Suspect]
     Indication: BIPOLAR DISORDER
     Route: 048
     Dates: start: 201302
  74. SEROQUEL [Suspect]
     Indication: SLEEP DISORDER
     Route: 048
     Dates: start: 201302
  75. SEROQUEL [Suspect]
     Indication: DEPRESSION
     Route: 048
     Dates: start: 201302
  76. SEROQUEL [Suspect]
     Indication: ANXIETY
     Route: 048
     Dates: start: 201302
  77. SEROQUEL [Suspect]
     Indication: AFFECTIVE DISORDER
     Route: 048
     Dates: start: 201302
  78. SEROQUEL [Suspect]
     Indication: SCHIZOPHRENIA
     Route: 048
     Dates: start: 201302
  79. SEROQUEL [Suspect]
     Indication: PERSONALITY DISORDER
     Route: 048
     Dates: start: 201302
  80. SEROQUEL [Suspect]
     Indication: DEPRESSION
     Route: 048
     Dates: start: 201302
  81. SEROQUEL [Suspect]
     Indication: POST-TRAUMATIC STRESS DISORDER
     Route: 048
     Dates: start: 201302
  82. SEROQUEL [Suspect]
     Indication: BIPOLAR DISORDER
     Route: 048
  83. SEROQUEL [Suspect]
     Indication: SLEEP DISORDER
     Route: 048
  84. SEROQUEL [Suspect]
     Indication: DEPRESSION
     Route: 048
  85. SEROQUEL [Suspect]
     Indication: ANXIETY
     Route: 048
  86. SEROQUEL [Suspect]
     Indication: AFFECTIVE DISORDER
     Route: 048
  87. SEROQUEL [Suspect]
     Indication: SCHIZOPHRENIA
     Route: 048
  88. SEROQUEL [Suspect]
     Indication: PERSONALITY DISORDER
     Route: 048
  89. SEROQUEL [Suspect]
     Indication: DEPRESSION
     Route: 048
  90. SEROQUEL [Suspect]
     Indication: POST-TRAUMATIC STRESS DISORDER
     Route: 048
  91. SEROQUEL [Suspect]
     Indication: BIPOLAR DISORDER
     Route: 048
     Dates: start: 201302
  92. SEROQUEL [Suspect]
     Indication: SLEEP DISORDER
     Route: 048
     Dates: start: 201302
  93. SEROQUEL [Suspect]
     Indication: DEPRESSION
     Route: 048
     Dates: start: 201302
  94. SEROQUEL [Suspect]
     Indication: ANXIETY
     Route: 048
     Dates: start: 201302
  95. SEROQUEL [Suspect]
     Indication: AFFECTIVE DISORDER
     Route: 048
     Dates: start: 201302
  96. SEROQUEL [Suspect]
     Indication: SCHIZOPHRENIA
     Route: 048
     Dates: start: 201302
  97. SEROQUEL [Suspect]
     Indication: PERSONALITY DISORDER
     Route: 048
     Dates: start: 201302
  98. SEROQUEL [Suspect]
     Indication: DEPRESSION
     Route: 048
     Dates: start: 201302
  99. SEROQUEL [Suspect]
     Indication: POST-TRAUMATIC STRESS DISORDER
     Route: 048
     Dates: start: 201302
  100. SEROQUEL [Suspect]
     Indication: BIPOLAR DISORDER
     Route: 048
     Dates: start: 1999
  101. SEROQUEL [Suspect]
     Indication: SLEEP DISORDER
     Route: 048
     Dates: start: 1999
  102. SEROQUEL [Suspect]
     Indication: DEPRESSION
     Route: 048
     Dates: start: 1999
  103. SEROQUEL [Suspect]
     Indication: ANXIETY
     Route: 048
     Dates: start: 1999
  104. SEROQUEL [Suspect]
     Indication: AFFECTIVE DISORDER
     Route: 048
     Dates: start: 1999
  105. SEROQUEL [Suspect]
     Indication: SCHIZOPHRENIA
     Route: 048
     Dates: start: 1999
  106. SEROQUEL [Suspect]
     Indication: PERSONALITY DISORDER
     Route: 048
     Dates: start: 1999
  107. SEROQUEL [Suspect]
     Indication: DEPRESSION
     Route: 048
     Dates: start: 1999
  108. SEROQUEL [Suspect]
     Indication: POST-TRAUMATIC STRESS DISORDER
     Route: 048
     Dates: start: 1999
  109. NEXIUM [Suspect]
     Indication: ULCER
     Route: 048
     Dates: start: 2000
  110. NEXIUM [Suspect]
     Indication: GASTROOESOPHAGEAL REFLUX DISEASE
     Route: 048
     Dates: start: 2000
  111. NEXIUM [Suspect]
     Indication: ULCER
     Route: 048
     Dates: start: 2011
  112. NEXIUM [Suspect]
     Indication: GASTROOESOPHAGEAL REFLUX DISEASE
     Route: 048
     Dates: start: 2011
  113. NEXIUM [Suspect]
     Indication: ULCER
     Route: 048
     Dates: start: 2000
  114. NEXIUM [Suspect]
     Indication: GASTROOESOPHAGEAL REFLUX DISEASE
     Route: 048
     Dates: start: 2000
  115. PRILOSEC OTC [Suspect]
     Route: 048
  116. MORPHINE [Suspect]
     Route: 065
  117. ATENOLOL [Concomitant]
     Indication: CARDIAC DISORDER
     Route: 048
  118. DEPAKOTE [Concomitant]
     Indication: EPILEPSY
     Dates: start: 2003
  119. DEPAKOTE [Concomitant]
     Indication: EPILEPSY
     Route: 048
  120. DEPAKOTE [Concomitant]
     Indication: EPILEPSY
     Dosage: 1000MG IN THE MORNING AND 1000MG IN THE EVENING
     Route: 048
  121. DEPAKOTE [Concomitant]
     Indication: EPILEPSY
     Dosage: 1000 MG IN THE MORNING AND 1000 MG IN THE EVENING AND 1000 MG AT NIGHT
     Route: 048
  122. EFFEXOR [Concomitant]
  123. VIMPAC [Concomitant]
     Indication: EPILEPSY
     Route: 048
  124. VIMPAC [Concomitant]
     Indication: EPILEPSY
     Route: 048
  125. SIMVASTATIN [Concomitant]
  126. HYDROXYZINE [Concomitant]
  127. CLONAZEPAM [Concomitant]
  128. ZINC [Concomitant]
     Indication: MINERAL SUPPLEMENTATION
     Route: 048
  129. ZONISANIDE [Concomitant]
  130. FUROSEMIDE/LASIX [Concomitant]
  131. VALIUM [Concomitant]
     Indication: AGITATION
     Route: 048
  132. TANZANADINE [Concomitant]
     Dosage: THREE TIMES A DAY
     Route: 048
  133. ZANTAC [Concomitant]
     Dosage: 150 MG, TWO TIMES A DAY
     Route: 048
  134. ZENOGRAN [Concomitant]
     Indication: EPILEPSY
     Route: 048
  135. ZENOGRAN [Concomitant]
     Indication: HEADACHE
     Route: 048
  136. ZANAFLEX [Concomitant]
     Indication: HEADACHE
     Route: 048
  137. ZANAFLEX [Concomitant]
     Indication: EPILEPSY
     Route: 048
  138. PRISTIQ [Concomitant]
     Indication: NERVOUS SYSTEM DISORDER
     Route: 048
  139. K-LOR [Concomitant]
  140. DIVALPROEX [Concomitant]
     Indication: EPILEPSY
  141. POTASSIUM [Concomitant]
  142. LASIX [Concomitant]
  143. FERROUS SULFATE [Concomitant]
  144. VITAMINS [Concomitant]
  145. VIIBRYD [Concomitant]
  146. DILANTIN [Concomitant]
     Indication: EPILEPSY
     Dates: start: 201302
  147. ZIBRID [Concomitant]
     Indication: MENTAL DISORDER
     Dates: start: 201203
  148. VITAMIN B12 [Concomitant]
  149. FOLIC ACID [Concomitant]
  150. TENORMIN [Concomitant]

REACTIONS (30)
  - Upper limb fracture [Unknown]
  - Clavicle fracture [Unknown]
  - Upper limb fracture [Unknown]
  - Fall [Unknown]
  - Myocardial infarction [Unknown]
  - Convulsion [Unknown]
  - Adverse event [Unknown]
  - Bipolar disorder [Unknown]
  - Ulcer [Unknown]
  - Cardiac disorder [Unknown]
  - Weight decreased [Unknown]
  - Schizophrenia, paranoid type [Unknown]
  - Ligament rupture [Unknown]
  - Tendon rupture [Unknown]
  - Impaired driving ability [Unknown]
  - Feeling abnormal [Unknown]
  - Gastrooesophageal reflux disease [Unknown]
  - Dissociative identity disorder [Unknown]
  - Bone formation increased [Unknown]
  - Drug hypersensitivity [Unknown]
  - Abdominal pain upper [Unknown]
  - Depression [Unknown]
  - Hallucination, auditory [Unknown]
  - Insomnia [Unknown]
  - Hallucination, visual [Unknown]
  - Vomiting [Unknown]
  - Intentional drug misuse [Unknown]
  - Incorrect dose administered [Unknown]
  - Off label use [Unknown]
  - Therapeutic response unexpected [Unknown]
